FAERS Safety Report 4766786-1 (Version None)
Quarter: 2005Q3

REPORT INFORMATION
  Report Type: 
  Country: None (occurrence: None)
  Receive Date: 20050912
  Receipt Date: 20050310
  Transmission Date: 20060218
  Serious: Yes (Hospitalization)
  Sender: FDA-Public Use
  Company Number: US-MERCK-0503USA02011

PATIENT
  Age: 55 Year
  Sex: Male
  Weight: 143 kg

DRUGS (17)
  1. PLAVIX [Concomitant]
     Indication: THROMBOSIS
     Route: 065
     Dates: start: 20030101
  2. ZOLOFT [Concomitant]
     Route: 048
     Dates: start: 19950101
  3. GLUCOTROL [Concomitant]
     Route: 065
  4. SYNTHROID [Concomitant]
     Route: 048
     Dates: start: 20001201
  5. SYNALAR [Concomitant]
     Route: 065
  6. HYDROCORTISONE OINTMENT [Concomitant]
     Route: 065
  7. KENALOG [Concomitant]
     Route: 065
  8. GLUCOPHAGE [Concomitant]
     Route: 048
  9. MINERAL OIL [Concomitant]
     Route: 065
  10. P+S SHAMPOO [Concomitant]
     Route: 065
  11. CAPTOPRIL [Concomitant]
     Route: 065
     Dates: start: 20030101
  12. LASIX [Concomitant]
     Route: 065
     Dates: start: 20030101
  13. METOPROLOL [Concomitant]
     Route: 065
     Dates: start: 20030101
  14. ISOSORBIDE [Concomitant]
     Route: 065
     Dates: start: 20030101
  15. VIOXX [Suspect]
     Indication: PSORIATIC ARTHROPATHY
     Route: 048
     Dates: start: 20020101, end: 20040101
  16. VIOXX [Suspect]
     Route: 065
     Dates: start: 20000804
  17. ASPIRIN [Concomitant]
     Route: 065

REACTIONS (21)
  - ACUTE MYOCARDIAL INFARCTION [None]
  - ANAEMIA [None]
  - ANGINA UNSTABLE [None]
  - ASTHENIA [None]
  - ATELECTASIS [None]
  - CORONARY ARTERY DISEASE [None]
  - CORONARY ARTERY OCCLUSION [None]
  - DEPRESSION [None]
  - DIABETIC ULCER [None]
  - EMOTIONAL DISTRESS [None]
  - GRAFT COMPLICATION [None]
  - HYPERTENSION [None]
  - INJURY [None]
  - PLEURAL EFFUSION [None]
  - PNEUMONIA [None]
  - PNEUMONIA STAPHYLOCOCCAL [None]
  - PSORIASIS [None]
  - PULMONARY OEDEMA [None]
  - SKIN ULCER [None]
  - STAPHYLOCOCCAL OSTEOMYELITIS [None]
  - VENTRICULAR DYSFUNCTION [None]
